FAERS Safety Report 6082148-1 (Version None)
Quarter: 2009Q1

REPORT INFORMATION
  Report Type: 
  Country: None (occurrence: None)
  Receive Date: 20090218
  Receipt Date: 20090210
  Transmission Date: 20090719
  Serious: Yes (Death)
  Sender: FDA-Public Use
  Company Number: US-BIOGENIDEC-2009BI004002

PATIENT
  Age: 53 Year
  Sex: Male

DRUGS (6)
  1. TYSABRI [Suspect]
     Indication: MULTIPLE SCLEROSIS
     Route: 042
     Dates: start: 20070829, end: 20090202
  2. BACLOFEN [Concomitant]
     Dates: end: 20090202
  3. PROPRANOLOL [Concomitant]
     Route: 048
     Dates: end: 20090202
  4. MODAFINIL [Concomitant]
     Dates: end: 20090202
  5. PROPOXYPHENE HCL CAP [Concomitant]
     Dates: end: 20090202
  6. DARVOCET-N 100 [Concomitant]
     Dates: end: 20090202

REACTIONS (13)
  - ABDOMINAL PAIN [None]
  - ACUTE RESPIRATORY DISTRESS SYNDROME [None]
  - ANAEMIA [None]
  - DYSARTHRIA [None]
  - DYSPHAGIA [None]
  - DYSPNOEA [None]
  - HYPOTHERMIA [None]
  - MENTAL STATUS CHANGES [None]
  - NAUSEA [None]
  - PNEUMONIA ASPIRATION [None]
  - RENAL TUBULAR NECROSIS [None]
  - THROMBOCYTOPENIA [None]
  - TINNITUS [None]
